FAERS Safety Report 12825570 (Version 1)
Quarter: 2016Q4

REPORT INFORMATION
  Report Type: Spontaneous
  Country: US (occurrence: US)
  Receive Date: 20161007
  Receipt Date: 20161007
  Transmission Date: 20170207
  Serious: No
  Sender: FDA-Public Use
  Company Number: US-INDIVIOR LIMITED-INDV-088755-2016

PATIENT
  Sex: Female

DRUGS (1)
  1. SUBUTEX [Suspect]
     Active Substance: BUPRENORPHINE HYDROCHLORIDE
     Indication: DEPENDENCE
     Dosage: UNK
     Route: 065
     Dates: start: 2015

REACTIONS (5)
  - Therapy cessation [Recovered/Resolved]
  - Drug withdrawal syndrome [Unknown]
  - Maternal exposure during pregnancy [Recovered/Resolved]
  - Fear of death [Unknown]
  - Feeling abnormal [Recovered/Resolved]

NARRATIVE: CASE EVENT DATE: 2015
